FAERS Safety Report 9580987 (Version 2)
Quarter: 2013Q4

REPORT INFORMATION
  Report Type: Spontaneous
  Country: US (occurrence: US)
  Receive Date: 20131002
  Receipt Date: 20131017
  Transmission Date: 20140711
  Serious: No
  Sender: FDA-Public Use
  Company Number: US-PFIZER INC-2013278698

PATIENT
  Sex: Female

DRUGS (1)
  1. TOVIAZ [Suspect]
     Indication: HYPERTONIC BLADDER
     Dosage: UNK

REACTIONS (2)
  - Drug ineffective [Unknown]
  - Abdominal discomfort [Unknown]
